FAERS Safety Report 18174888 (Version 2)
Quarter: 2020Q4

REPORT INFORMATION
  Report Type: Spontaneous
  Country: AU (occurrence: AU)
  Receive Date: 20200820
  Receipt Date: 20201012
  Transmission Date: 20210113
  Serious: No
  Sender: FDA-Public Use
  Company Number: AU-TOLMAR, INC.-20AU022421

PATIENT
  Age: 70 Year
  Sex: Male

DRUGS (2)
  1. ELIGARD [Suspect]
     Active Substance: LEUPROLIDE ACETATE
     Dosage: 7.5 MG, Q 1 MONTH
     Route: 058
  2. ELIGARD [Suspect]
     Active Substance: LEUPROLIDE ACETATE
     Indication: PROSTATE CANCER
     Dosage: 7.5 MG, Q 1 MONTH
     Route: 058
     Dates: start: 20200817

REACTIONS (4)
  - Syringe issue [Unknown]
  - Wrong technique in product usage process [Unknown]
  - Intercepted product preparation error [Unknown]
  - Device leakage [Unknown]

NARRATIVE: CASE EVENT DATE: 20200817
